FAERS Safety Report 8400868-8 (Version None)
Quarter: 2012Q2

REPORT INFORMATION
  Report Type: 
  Country: None (occurrence: None)
  Receive Date: 20120601
  Receipt Date: 20090217
  Transmission Date: 20120825
  Serious: Yes (Hospitalization, Other)
  Sender: FDA-Public Use
  Company Number: JP-BRISTOL-MYERS SQUIBB COMPANY-14438915

PATIENT
  Age: 55 Year
  Sex: Female
  Weight: 51 kg

DRUGS (14)
  1. ABILIFY [Suspect]
     Indication: SCHIZOPHRENIA
     Dosage: 26AUG-8SEP08(6MG);10SEP-6OCT08(12MG);7OCT-7DEC08(18MG)8DEC-9DEC08(12MG)10DEC-11DEC08(6MG).
     Route: 048
     Dates: start: 20080826, end: 20081212
  2. MAGLAX [Concomitant]
     Dosage: TABS
     Dates: start: 20070731
  3. RISPERDAL [Concomitant]
     Dosage: TABS
  4. HOKUNALIN [Concomitant]
     Dosage: TAPE
  5. LODOPIN [Concomitant]
     Dosage: TABS
  6. HIRNAMIN [Concomitant]
     Dates: start: 20061226
  7. CLARITHROMYCIN [Concomitant]
     Dosage: TABS
  8. SEROQUEL [Concomitant]
     Route: 048
  9. PREDNISOLONE [Concomitant]
  10. HALOPERIDOL [Concomitant]
  11. OMEPRAZOLE [Concomitant]
     Dates: start: 20050201
  12. CHLORPROMAZINE HCL [Concomitant]
     Dates: start: 20071218
  13. AKINETON [Concomitant]
     Dosage: TABS
  14. LAMISIL [Concomitant]
     Dosage: TABS

REACTIONS (6)
  - GASTRITIS [None]
  - RED BLOOD CELL COUNT DECREASED [None]
  - ANAEMIA [None]
  - HAEMOGLOBIN DECREASED [None]
  - HAEMATOCRIT DECREASED [None]
  - CARDIAC FAILURE [None]
